FAERS Safety Report 11009464 (Version 1)
Quarter: 2015Q2

REPORT INFORMATION
  Report Type: Report from Study
  Country: FR (occurrence: FR)
  Receive Date: 20150410
  Receipt Date: 20150410
  Transmission Date: 20150821
  Serious: Yes (Death)
  Sender: FDA-Public Use
  Company Number: FR-SA-2015SA045442

PATIENT

DRUGS (10)
  1. BLEOMYCIN [Suspect]
     Active Substance: BLEOMYCIN SULFATE
     Indication: GERM CELL NEOPLASM
     Dosage: PER DAY IN 24 H ON DAYS 10-14 DOSE:25 UNIT(S)
     Route: 042
  2. CISPLATIN. [Suspect]
     Active Substance: CISPLATIN
     Indication: GERM CELL NEOPLASM
     Dosage: PER DAY FOR 5 DAYS
     Route: 042
  3. MESNA. [Concomitant]
     Active Substance: MESNA
     Dosage: INTRAVENOUS OR ORAL, AT 0, 3, 7, AND 11 HOUR ON THE DAYS WHEN IFOSFAMIDE WAS GIVEN
  4. OXALIPLATIN. [Suspect]
     Active Substance: OXALIPLATIN
     Indication: GERM CELL NEOPLASM
     Dosage: OVER 3 H ON DAY 10
     Route: 042
  5. PACLITAXEL. [Suspect]
     Active Substance: PACLITAXEL
     Indication: GERM CELL NEOPLASM
     Dosage: OVER 3  H ON DAY  1
     Route: 042
  6. BLEOMYCIN [Suspect]
     Active Substance: BLEOMYCIN SULFATE
     Indication: GERM CELL NEOPLASM
     Dosage: INTRAVENOUS OR INTRAMUSCULAR, PER DAY ON DAYS 1,  8,  AND  15
  7. CISPLATIN. [Suspect]
     Active Substance: CISPLATIN
     Indication: GERM CELL NEOPLASM
     Dosage: OVER 2 H ON DAY  1
     Route: 042
  8. IFOSFAMIDE. [Suspect]
     Active Substance: IFOSFAMIDE
     Indication: GERM CELL NEOPLASM
     Dosage: OVER 3 H ON DAYS 10, 12,  AND 14 DOSE:2 GRAM(S)/SQUARE METER
     Route: 042
  9. LENOGRASTIM [Concomitant]
     Active Substance: LENOGRASTIM
     Dosage: ON DAYS 2-9 AND DAYS 16-20
     Route: 058
  10. ETOPOSIDE. [Suspect]
     Active Substance: ETOPOSIDE
     Indication: GERM CELL NEOPLASM
     Dosage: PER DAY FOR 5 DAYS
     Route: 042

REACTIONS (1)
  - Toxicity to various agents [Fatal]
